FAERS Safety Report 4765911-6 (Version None)
Quarter: 2005Q3

REPORT INFORMATION
  Report Type: 
  Country: None (occurrence: None)
  Receive Date: 20050908
  Receipt Date: 20050908
  Transmission Date: 20060218
  Serious: No
  Sender: FDA-Public Use
  Company Number: None

PATIENT
  Age: 71 Year
  Sex: Female
  Weight: 71.6683 kg

DRUGS (1)
  1. ACTONEL [Suspect]
     Indication: OSTEOPOROSIS PROPHYLAXIS
     Dosage: 35 MG

REACTIONS (8)
  - BURNING SENSATION [None]
  - EAR DISCOMFORT [None]
  - HEADACHE [None]
  - JOINT STIFFNESS [None]
  - MASS [None]
  - MUSCULOSKELETAL STIFFNESS [None]
  - ODYNOPHAGIA [None]
  - THROAT IRRITATION [None]
